FAERS Safety Report 9617301 (Version 2)
Quarter: 2013Q4

REPORT INFORMATION
  Report Type: Spontaneous
  Country: US (occurrence: None)
  Receive Date: 20131009
  Receipt Date: 20131017
  Transmission Date: 20140711
  Serious: Yes (Other)
  Sender: FDA-Public Use
  Company Number: 1713747-2013-99954

PATIENT
  Sex: 0
  Weight: 127.46 kg

DRUGS (13)
  1. PLAVIX [Suspect]
  2. PRINIVIL [Concomitant]
  3. CRESTOR [Concomitant]
  4. LOPRESSOR [Concomitant]
  5. HUMALOG [Concomitant]
  6. LANTUS [Concomitant]
  7. IMDUR [Concomitant]
  8. ASPIRIN [Concomitant]
  9. LASIX [Concomitant]
  10. CETIRIZINE [Concomitant]
  11. CALCITRIOL [Concomitant]
  12. NITROSTAT [Concomitant]
  13. RENA PLEX [Concomitant]

REACTIONS (10)
  - Peritonitis [None]
  - Haemorrhage [None]
  - Cardiovascular disorder [None]
  - Depressed level of consciousness [None]
  - Oedema peripheral [None]
  - Hypoglycaemia [None]
  - Pulmonary hypertension [None]
  - Ischaemic cardiomyopathy [None]
  - Angina unstable [None]
  - Mitral valve stenosis [None]
